FAERS Safety Report 25771739 (Version 1)
Quarter: 2025Q3

REPORT INFORMATION
  Report Type: Report from Study
  Country: JP (occurrence: JP)
  Receive Date: 20250908
  Receipt Date: 20250908
  Transmission Date: 20251021
  Serious: Yes (Other)
  Sender: ASTELLAS
  Company Number: JP-ASTELLAS-2025-AER-048475

PATIENT
  Age: 66 Year
  Sex: Male

DRUGS (12)
  1. GILTERITINIB [Suspect]
     Active Substance: GILTERITINIB
     Indication: Acute myeloid leukaemia
     Route: 065
  2. CYTARABINE [Concomitant]
     Active Substance: CYTARABINE
     Indication: Acute myeloid leukaemia
     Route: 065
  3. ACLARUBICIN [Concomitant]
     Active Substance: ACLARUBICIN
     Indication: Acute myeloid leukaemia
     Route: 065
  4. ACLARUBICIN [Concomitant]
     Active Substance: ACLARUBICIN
     Route: 065
  5. ACLARUBICIN [Concomitant]
     Active Substance: ACLARUBICIN
     Route: 065
  6. MITOXANTRONE [Concomitant]
     Active Substance: MITOXANTRONE HYDROCHLORIDE
     Indication: Acute myeloid leukaemia
     Route: 065
  7. DAUNORUBICIN [Concomitant]
     Active Substance: DAUNORUBICIN
     Indication: Acute myeloid leukaemia
     Route: 065
  8. ETOPOSIDE [Concomitant]
     Active Substance: ETOPOSIDE
     Indication: Acute myeloid leukaemia
     Route: 065
  9. VINCRISTINE [Concomitant]
     Active Substance: VINCRISTINE
     Indication: Acute myeloid leukaemia
     Route: 065
  10. VINDESINE [Concomitant]
     Active Substance: VINDESINE
     Indication: Acute myeloid leukaemia
     Route: 065
  11. VENETOCLAX [Concomitant]
     Active Substance: VENETOCLAX
     Indication: Acute myeloid leukaemia
     Route: 065
  12. AZACITIDINE [Concomitant]
     Active Substance: AZACITIDINE
     Indication: Acute myeloid leukaemia
     Route: 065

REACTIONS (1)
  - Cerebral haemorrhage [Unknown]
